FAERS Safety Report 6093111-9 (Version None)
Quarter: 2009Q1

REPORT INFORMATION
  Report Type: 
  Country: None (occurrence: None)
  Receive Date: 20090226
  Receipt Date: 20090210
  Transmission Date: 20090719
  Serious: Yes (Hospitalization)
  Sender: FDA-Public Use
  Company Number: JP-JNJFOC-20090203720

PATIENT
  Age: 12 Year
  Sex: Male

DRUGS (7)
  1. RISPERDAL [Suspect]
     Route: 048
  2. RISPERDAL [Suspect]
     Route: 048
  3. RISPERDAL [Suspect]
     Route: 048
  4. RISPERDAL [Suspect]
     Indication: SCHIZOPHRENIA
     Route: 048
  5. RISPERDAL [Suspect]
     Dosage: AS REQUIRED
     Route: 048
  6. AKINETON [Concomitant]
     Route: 065
  7. SULPIRIDE [Concomitant]
     Indication: DEPRESSION
     Route: 065

REACTIONS (3)
  - BIPOLAR DISORDER [None]
  - FATIGUE [None]
  - LIVER DISORDER [None]
